FAERS Safety Report 8069700-9 (Version None)
Quarter: 2012Q1

REPORT INFORMATION
  Report Type: 
  Country: None (occurrence: None)
  Receive Date: 20120125
  Receipt Date: 20110630
  Transmission Date: 20120608
  Serious: No
  Sender: FDA-Public Use
  Company Number: US-PFIZER INC-2011US-46314

PATIENT
  Age: 74 Year
  Sex: Female

DRUGS (7)
  1. MOMETASONE FUROATE [Concomitant]
     Dosage: UNK
  2. WARFARIN SODIUM [Concomitant]
     Dosage: UNK
  3. LEKOVIT CA [Concomitant]
     Dosage: UNK
  4. METOPROLOL [Concomitant]
     Dosage: UNK
  5. ENALAPRIL [Concomitant]
     Dosage: UNK
  6. HYDROXYZINE [Concomitant]
     Dosage: UNK
  7. ISOPTIN SR [Suspect]
     Indication: PRODUCT USED FOR UNKNOWN INDICATION
     Dosage: 240 MG, QD
     Route: 048
     Dates: start: 20110428

REACTIONS (4)
  - RASH [None]
  - ORTHOSTATIC HYPOTENSION [None]
  - HYPOTENSION [None]
  - HEADACHE [None]
